FAERS Safety Report 8683073 (Version 2)
Quarter: 2013Q4

REPORT INFORMATION
  Report Type: Spontaneous
  Country: BR (occurrence: BR)
  Receive Date: 20120725
  Receipt Date: 20131106
  Transmission Date: 20140711
  Serious: Yes (Other)
  Sender: FDA-Public Use
  Company Number: BR-009507513-1207BRA001073

PATIENT
  Age: 14 Year
  Sex: Female
  Weight: 39 kg

DRUGS (5)
  1. TEMODAL [Suspect]
     Indication: GLIOBLASTOMA
     Dosage: UNK UNK, CYCLICAL
     Route: 048
     Dates: start: 20120206, end: 20120210
  2. TEMODAL [Suspect]
     Dosage: UNK UNK, CYCLICAL
     Route: 048
     Dates: start: 201203, end: 201203
  3. TEMODAL [Suspect]
     Dosage: UNK UNK, CYCLICAL
     Route: 048
     Dates: start: 201204, end: 201204
  4. TEMODAL [Suspect]
     Dosage: UNK UNK, CYCLICAL
     Route: 048
     Dates: start: 20120206, end: 20120206
  5. PHENOBARBITAL [Concomitant]
     Indication: CONVULSION PROPHYLAXIS
     Dosage: 100 MG, QD
     Route: 048
     Dates: start: 201112

REACTIONS (2)
  - Glioblastoma [Unknown]
  - Product outer packaging issue [Unknown]
